FAERS Safety Report 17391598 (Version 1)
Quarter: 2020Q1

REPORT INFORMATION
  Report Type: Spontaneous
  Country: US (occurrence: US)
  Receive Date: 20200207
  Receipt Date: 20200207
  Transmission Date: 20200409
  Serious: No
  Sender: FDA-Public Use
  Company Number: US-ASTRAZENECA-2020SE07116

PATIENT

DRUGS (1)
  1. LOKELMA [Suspect]
     Active Substance: SODIUM ZIRCONIUM CYCLOSILICATE
     Indication: BLOOD POTASSIUM
     Dosage: 10.0G ONCE/SINGLE ADMINISTRATION
     Route: 048

REACTIONS (2)
  - Blood potassium abnormal [Unknown]
  - Product use issue [Unknown]
